FAERS Safety Report 9702179 (Version 2)
Quarter: 2014Q1

REPORT INFORMATION
  Report Type: Spontaneous
  Country: US (occurrence: None)
  Receive Date: 20131119
  Receipt Date: 20140110
  Transmission Date: 20141002
  Serious: Yes (Other)
  Sender: FDA-Public Use
  Company Number: 2009138

PATIENT
  Age: 67 Year
  Sex: Male

DRUGS (2)
  1. BUPIVACAINE HCL [Suspect]
     Indication: ARTHRALGIA
     Dosage: INJECTION IN L KNEE
     Dates: start: 20131029
  2. ALL THERAPEUTIC PRODUCTS [Concomitant]
     Indication: ARTHRALGIA
     Dates: start: 20131029

REACTIONS (4)
  - Pain [None]
  - Staphylococcal infection [None]
  - Unevaluable event [None]
  - Loss of consciousness [None]
